FAERS Safety Report 22605510 (Version 1)
Quarter: 2023Q2

REPORT INFORMATION
  Report Type: Spontaneous
  Country: US (occurrence: None)
  Receive Date: 20230614
  Receipt Date: 20230614
  Transmission Date: 20230722
  Serious: No
  Sender: FDA-Public Use
  Company Number: None

PATIENT
  Age: 62 Year
  Sex: Male
  Weight: 90 kg

DRUGS (1)
  1. PROCRIT [Suspect]
     Active Substance: ERYTHROPOIETIN
     Indication: Anaemia
     Dosage: OTHER FREQUENCY : WEEKLY;?
     Route: 030
     Dates: start: 20230120

REACTIONS (1)
  - Incorrect route of product administration [None]

NARRATIVE: CASE EVENT DATE: 20230327
